FAERS Safety Report 13159768 (Version 1)
Quarter: 2017Q1

REPORT INFORMATION
  Report Type: Report from Study
  Country: CA (occurrence: CA)
  Receive Date: 20170127
  Receipt Date: 20170127
  Transmission Date: 20170428
  Serious: Yes (Other)
  Sender: FDA-Public Use
  Company Number: CA-AMGEN-CANSL2017011890

PATIENT
  Age: 55 Year
  Sex: Male

DRUGS (4)
  1. EZETROL [Concomitant]
     Active Substance: EZETIMIBE
  2. VITAMIN D [Concomitant]
     Active Substance: CHOLECALCIFEROL
  3. REPATHA [Suspect]
     Active Substance: EVOLOCUMAB
     Indication: ARTERIOSCLEROSIS
  4. REPATHA [Suspect]
     Active Substance: EVOLOCUMAB
     Indication: HYPERCHOLESTEROLAEMIA
     Dosage: 140 MG/ML, UNK
     Route: 065
     Dates: start: 20160524

REACTIONS (7)
  - Abdominal discomfort [Unknown]
  - Chest pain [Unknown]
  - Dyspnoea [Unknown]
  - Cardiac flutter [Unknown]
  - Gait disturbance [Not Recovered/Not Resolved]
  - Axillary pain [Unknown]
  - Drug effect incomplete [Unknown]

NARRATIVE: CASE EVENT DATE: 201612
